FAERS Safety Report 21761117 (Version 1)
Quarter: 2022Q4

REPORT INFORMATION
  Report Type: Spontaneous
  Country: US (occurrence: US)
  Receive Date: 20221221
  Receipt Date: 20221221
  Transmission Date: 20230112
  Serious: Yes (Death)
  Sender: FDA-Public Use
  Company Number: US-PFIZER INC-2021058412

PATIENT
  Age: 80 Year
  Sex: Female

DRUGS (2)
  1. RETACRIT [Suspect]
     Active Substance: EPOETIN ALFA-EPBX
     Dosage: 40000 IU
  2. RETACRIT [Suspect]
     Active Substance: EPOETIN ALFA-EPBX
     Dosage: INJECT 60,000 UNITS (TOTAL OF 6ML IN DIVIDED SYRINGES) SUBCUTANEOUSLY TWICE A WEEK)
     Route: 058

REACTIONS (1)
  - Death [Fatal]
